FAERS Safety Report 7785452-1 (Version None)
Quarter: 2011Q3

REPORT INFORMATION
  Report Type: 
  Country: None (occurrence: None)
  Receive Date: 20110929
  Receipt Date: 20110919
  Transmission Date: 20111222
  Serious: Yes (Hospitalization, Other)
  Sender: FDA-Public Use
  Company Number: PHEH2011US04731

PATIENT
  Sex: Female

DRUGS (1)
  1. NEORAL [Suspect]
     Indication: LIVER TRANSPLANT
     Dosage: 12.5 MG, BID
     Route: 048
     Dates: start: 20110325

REACTIONS (3)
  - SCAR [None]
  - HEPATITIS C [None]
  - IRON OVERLOAD [None]
